FAERS Safety Report 10855882 (Version 1)
Quarter: 2015Q1

REPORT INFORMATION
  Report Type: Spontaneous
  Country: BR (occurrence: BR)
  Receive Date: 20150223
  Receipt Date: 20150223
  Transmission Date: 20150721
  Serious: Yes (Other)
  Sender: FDA-Public Use
  Company Number: BR-ASTRAZENECA-2014SE88689

PATIENT
  Age: 46 Year
  Sex: Male

DRUGS (8)
  1. ONGLYZA [Suspect]
     Active Substance: SAXAGLIPTIN HYDROCHLORIDE
     Indication: TYPE 2 DIABETES MELLITUS
     Route: 048
  2. HIGROTON [Suspect]
     Active Substance: CHLORTHALIDONE
     Indication: DIURETIC THERAPY
     Dosage: NON-AZ PRODUCT
     Route: 065
  3. HIGROTON [Suspect]
     Active Substance: CHLORTHALIDONE
     Indication: HYPERTENSION
     Dosage: NON-AZ PRODUCT
     Route: 065
  4. FORXIGA [Suspect]
     Active Substance: DAPAGLIFLOZIN
     Indication: TYPE 2 DIABETES MELLITUS
     Route: 048
     Dates: start: 201409
  5. KOMBIGLYZE XR [Suspect]
     Active Substance: METFORMIN HYDROCHLORIDE\SAXAGLIPTIN HYDROCHLORIDE
     Indication: TYPE 2 DIABETES MELLITUS
     Route: 048
  6. NPH INSULIN [Concomitant]
     Active Substance: INSULIN BEEF
     Indication: TYPE 2 DIABETES MELLITUS
     Route: 058
     Dates: start: 2009
  7. METFORMIN [Suspect]
     Active Substance: METFORMIN HYDROCHLORIDE
     Indication: TYPE 2 DIABETES MELLITUS
     Dosage: NON-AZ PRODUCT, EVERY DAY
     Route: 048
     Dates: start: 2009
  8. PRESSPLUS [Concomitant]
     Indication: HYPERTENSION
     Route: 048

REACTIONS (3)
  - Hypertension [Recovered/Resolved]
  - Infection [Not Recovered/Not Resolved]
  - Hyperglycaemia [Recovered/Resolved]

NARRATIVE: CASE EVENT DATE: 1999
